FAERS Safety Report 5441327-4 (Version None)
Quarter: 2007Q3

REPORT INFORMATION
  Report Type: 
  Country: None (occurrence: None)
  Receive Date: 20070903
  Receipt Date: 20070829
  Transmission Date: 20080115
  Serious: Yes (Other)
  Sender: FDA-Public Use
  Company Number: PHEH2007US11677

PATIENT

DRUGS (1)
  1. ZOMETA [Suspect]
     Dosage: 4MG Q6MOS

REACTIONS (2)
  - ANGINA PECTORIS [None]
  - CARDIOVASCULAR DISORDER [None]
